FAERS Safety Report 8045895-8 (Version None)
Quarter: 2012Q1

REPORT INFORMATION
  Report Type: 
  Country: None (occurrence: None)
  Receive Date: 20120113
  Receipt Date: 20120110
  Transmission Date: 20120608
  Serious: Yes (Hospitalization)
  Sender: FDA-Public Use
  Company Number: US-GLAXOSMITHKLINE-A0958338A

PATIENT
  Age: 73 Year
  Sex: Male
  Weight: 84.8 kg

DRUGS (11)
  1. MELPHALAN HYDROCHLORIDE [Suspect]
     Indication: MULTIPLE MYELOMA
     Dosage: 12MG CYCLIC
     Route: 048
     Dates: start: 20110418
  2. PREDNISONE [Suspect]
     Indication: MULTIPLE MYELOMA
     Dosage: 100MG CYCLIC
     Dates: start: 20110418
  3. AUGMENTIN '125' [Concomitant]
  4. FLOMAX [Concomitant]
  5. PERIDEX [Concomitant]
     Dosage: 15ML TWICE PER DAY
     Route: 048
  6. TOPROL-XL [Concomitant]
     Dosage: 25MG PER DAY
     Route: 048
  7. ZOVIRAX [Concomitant]
  8. RENVELA [Concomitant]
     Indication: INTESTINAL OBSTRUCTION
     Dosage: 2400MG PER DAY
     Route: 048
  9. PHENERGAN [Concomitant]
     Indication: HYPERSENSITIVITY
     Route: 048
  10. ZOFRAN [Concomitant]
     Indication: NAUSEA
     Dosage: 12MG PER DAY
     Route: 048
  11. VELCADE [Suspect]
     Indication: MULTIPLE MYELOMA
     Dosage: 1.3MGM2 WEEKLY
     Route: 042
     Dates: start: 20110418

REACTIONS (14)
  - CHILLS [None]
  - MALAISE [None]
  - ORTHOPNOEA [None]
  - ASTHENIA [None]
  - DYSPNOEA [None]
  - INTESTINAL OBSTRUCTION [None]
  - PNEUMONIA [None]
  - FEELING ABNORMAL [None]
  - INGUINAL HERNIA [None]
  - GRAM STAIN POSITIVE [None]
  - CHEST PAIN [None]
  - PYREXIA [None]
  - CHEST DISCOMFORT [None]
  - DYSGEUSIA [None]
